FAERS Safety Report 15276309 (Version 2)
Quarter: 2018Q4

REPORT INFORMATION
  Report Type: Spontaneous
  Country: FR (occurrence: FR)
  Receive Date: 20180814
  Receipt Date: 20181109
  Transmission Date: 20190204
  Serious: Yes (Hospitalization)
  Sender: FDA-Public Use
  Company Number: FR-JNJFOC-20180810407

PATIENT
  Age: 32 Year
  Sex: Male
  Weight: 51.5 kg

DRUGS (3)
  1. MIRTAZAPINE. [Suspect]
     Active Substance: MIRTAZAPINE
     Indication: ANOREXIA NERVOSA
     Route: 048
     Dates: end: 20180207
  2. RISPERIDONE. [Suspect]
     Active Substance: RISPERIDONE
     Indication: ANOREXIA NERVOSA
     Route: 048
     Dates: end: 20180207
  3. ALDACTONE [Suspect]
     Active Substance: SPIRONOLACTONE
     Indication: GENERALISED OEDEMA
     Route: 048
     Dates: start: 201712, end: 201802

REACTIONS (3)
  - Acute generalised exanthematous pustulosis [Recovered/Resolved]
  - Product use in unapproved indication [Unknown]
  - Off label use [Unknown]

NARRATIVE: CASE EVENT DATE: 20180207
